FAERS Safety Report 20837635 (Version 3)
Quarter: 2022Q2

REPORT INFORMATION
  Report Type: Report from Study
  Country: DE (occurrence: DE)
  Receive Date: 20220517
  Receipt Date: 20220526
  Transmission Date: 20220721
  Serious: Yes (Hospitalization)
  Sender: FDA-Public Use
  Company Number: DE-EXELIXIS-XL18422051938

PATIENT

DRUGS (3)
  1. CABOZANTINIB [Suspect]
     Active Substance: CABOZANTINIB
     Indication: Renal cell carcinoma
     Dosage: 60 MG, QD
     Dates: start: 20210714, end: 20211026
  2. CABOZANTINIB [Suspect]
     Active Substance: CABOZANTINIB
     Dosage: 60 MG, QD
     Dates: start: 202112, end: 20220221
  3. Novamin [Concomitant]
     Dosage: 500 MG, QID
     Route: 048
     Dates: start: 20210707

REACTIONS (5)
  - Cholecystitis [Recovering/Resolving]
  - Hyperthyroidism [Recovering/Resolving]
  - Hyperhidrosis [Recovering/Resolving]
  - Hypogeusia [Recovering/Resolving]
  - Diarrhoea [Recovering/Resolving]

NARRATIVE: CASE EVENT DATE: 20211007
